FAERS Safety Report 5376086-7 (Version None)
Quarter: 2007Q3

REPORT INFORMATION
  Report Type: 
  Country: None (occurrence: None)
  Receive Date: 20070702
  Receipt Date: 20070625
  Transmission Date: 20080115
  Serious: Yes (Other)
  Sender: FDA-Public Use
  Company Number: A0627464A

PATIENT
  Age: 61 Year
  Sex: Female

DRUGS (8)
  1. COREG [Suspect]
     Indication: CARDIOMYOPATHY
     Dosage: 3.125MG TWICE PER DAY
     Route: 048
     Dates: start: 20041201, end: 20070401
  2. COREG CR [Suspect]
     Indication: CARDIOMYOPATHY
     Dosage: 20MG PER DAY
     Route: 048
     Dates: start: 20070401
  3. LASIX [Suspect]
  4. IRON SUPPLEMENT [Concomitant]
  5. COUMADIN [Concomitant]
  6. ALDACTONE [Concomitant]
  7. ALTACE [Concomitant]
  8. HYDROCHLOROTHIAZIDE [Concomitant]

REACTIONS (6)
  - ABDOMINAL DISTENSION [None]
  - ANAEMIA [None]
  - DRUG INTERACTION [None]
  - FLUID RETENTION [None]
  - WEIGHT INCREASED [None]
  - WEIGHT LOSS POOR [None]
